FAERS Safety Report 7301699-2 (Version None)
Quarter: 2011Q1

REPORT INFORMATION
  Report Type: 
  Country: None (occurrence: None)
  Receive Date: 20110218
  Receipt Date: 20110211
  Transmission Date: 20110831
  Serious: Yes (Hospitalization)
  Sender: FDA-Public Use
  Company Number: B0700484A

PATIENT
  Sex: Female

DRUGS (3)
  1. DIETARY SUPPLEMENT [Concomitant]
     Indication: ENERGY INCREASED
     Route: 065
     Dates: start: 20100801, end: 20101011
  2. DIETARY SUPPLEMENT [Concomitant]
     Indication: WEIGHT CONTROL
     Route: 065
     Dates: start: 20100501, end: 20101011
  3. ALLI [Suspect]
     Route: 065
     Dates: start: 20100501, end: 20101011

REACTIONS (6)
  - BLOOD CREATINE INCREASED [None]
  - RHABDOMYOLYSIS [None]
  - MYALGIA [None]
  - AZOTAEMIA [None]
  - RENAL FAILURE ACUTE [None]
  - OFF LABEL USE [None]
